FAERS Safety Report 5876763-5 (Version None)
Quarter: 2008Q3

REPORT INFORMATION
  Report Type: 
  Country: None (occurrence: None)
  Receive Date: 20080910
  Receipt Date: 20080901
  Transmission Date: 20090109
  Serious: Yes (Hospitalization)
  Sender: FDA-Public Use
  Company Number: NL-BRISTOL-MYERS SQUIBB COMPANY-14326086

PATIENT
  Age: 39 Year
  Sex: Female

DRUGS (6)
  1. CETUXIMAB [Suspect]
     Indication: NON-SMALL CELL LUNG CANCER
     Route: 042
     Dates: start: 20080729
  2. CISPLATIN [Suspect]
     Indication: NON-SMALL CELL LUNG CANCER
     Route: 042
     Dates: start: 20080805
  3. RADIOTHERAPY [Suspect]
     Indication: NON-SMALL CELL LUNG CANCER
     Route: 061
     Dates: start: 20080805
  4. GRANISETRON [Concomitant]
     Dates: start: 20080816
  5. METOCLOPRAMIDE HCL [Concomitant]
     Dates: start: 20080818
  6. SUCRALFATE [Concomitant]
     Dates: start: 20080821

REACTIONS (3)
  - ANOREXIA [None]
  - FATIGUE [None]
  - NAUSEA [None]
